FAERS Safety Report 16259863 (Version 1)
Quarter: 2019Q2

REPORT INFORMATION
  Report Type: Spontaneous
  Country: NL (occurrence: NL)
  Receive Date: 20190501
  Receipt Date: 20190501
  Transmission Date: 20190711
  Serious: Yes (Other)
  Sender: FDA-Public Use
  Company Number: NL-ACCORD-124967

PATIENT
  Age: 69 Year
  Sex: Male

DRUGS (1)
  1. MITOMYCIN. [Suspect]
     Active Substance: MITOMYCIN
     Indication: GLAUCOMA
     Route: 047

REACTIONS (3)
  - Intentional product use issue [Unknown]
  - Hypotony of eye [Recovered/Resolved]
  - Off label use [Unknown]
